FAERS Safety Report 11201529 (Version 2)
Quarter: 2015Q3

REPORT INFORMATION
  Report Type: Spontaneous
  Country: US (occurrence: None)
  Receive Date: 20150617
  Receipt Date: 20150702
  Transmission Date: 20151125
  Serious: Yes (Death, Hospitalization, Other)
  Sender: FDA-Public Use
  Company Number: 2015-US-000003

PATIENT
  Age: 29 Year
  Sex: Female

DRUGS (8)
  1. METHYLPREDNISOLONE (METHYLPREDNISOLONE) [Concomitant]
     Active Substance: METHYLPREDNISOLONE
  2. IVERMECTIN 3MG [Suspect]
     Active Substance: IVERMECTIN
     Indication: STRONGYLOIDIASIS
  3. PREDNISONE (PREDNISONE) [Concomitant]
     Active Substance: PREDNISONE
  4. CIPROFLOXACIN (CIPROFLOXACIN HYDROCHLORIDE) [Concomitant]
  5. DOXYCYCLINE. [Concomitant]
     Active Substance: DOXYCYCLINE
  6. CEFTRIAXONE (CEFTRIAXONE SODIUM) [Concomitant]
  7. CLINDAMYCIN (CLINDAMYCIN HYDROCHLORIDE) [Concomitant]
  8. IMMUNOGLOBULIN (IMMUNOGLOBULIN) [Concomitant]

REACTIONS (3)
  - Toxic epidermal necrolysis [None]
  - Drug ineffective [None]
  - Pseudomonal sepsis [None]
